FAERS Safety Report 5659747-1 (Version None)
Quarter: 2008Q1

REPORT INFORMATION
  Report Type: 
  Country: None (occurrence: None)
  Receive Date: 20080311
  Receipt Date: 20070703
  Transmission Date: 20080703
  Serious: No
  Sender: FDA-Public Use
  Company Number: US-BAYER-200712134BCC

PATIENT
  Age: 74 Year
  Sex: Female
  Weight: 51 kg

DRUGS (4)
  1. ALEVE [Suspect]
     Indication: ARTHRALGIA
     Dosage: TOTAL DAILY DOSE: 220 MG  UNIT DOSE: 220 MG
     Route: 048
     Dates: start: 20040101, end: 20070701
  2. PROCARDIA [Concomitant]
  3. MAXZIDE [Concomitant]
  4. LOPRESSOR [Concomitant]

REACTIONS (1)
  - CONTUSION [None]
